FAERS Safety Report 4305044-6 (Version None)
Quarter: 2004Q1

REPORT INFORMATION
  Report Type: 
  Country: None (occurrence: None)
  Receive Date: 20040225
  Receipt Date: 20040225
  Transmission Date: 20041129
  Serious: Yes (Hospitalization)
  Sender: FDA-Public Use
  Company Number: None

PATIENT
  Age: 54 Year
  Sex: Male
  Weight: 84.8226 kg

DRUGS (6)
  1. CLOPIDOGREL BISULFATE [Suspect]
     Indication: ANGIOPLASTY
     Dosage: 75 MG PO QD
     Route: 048
     Dates: start: 20030101, end: 20030110
  2. ATORVASTATIN [Concomitant]
  3. TERAZOSIN HCL [Concomitant]
  4. LISINOPRIL [Concomitant]
  5. ASPIRIN [Concomitant]
  6. METOPROLOL TARTRATE [Concomitant]

REACTIONS (3)
  - CONDITION AGGRAVATED [None]
  - NEUTROPENIA [None]
  - VIRAL INFECTION [None]
